FAERS Safety Report 5315871-4 (Version None)
Quarter: 2007Q2

REPORT INFORMATION
  Report Type: 
  Country: None (occurrence: None)
  Receive Date: 20070503
  Receipt Date: 20070424
  Transmission Date: 20071010
  Serious: Yes (Other)
  Sender: FDA-Public Use
  Company Number: US-PFIZER INC-2007033217

PATIENT
  Sex: Male
  Weight: 67.272 kg

DRUGS (9)
  1. VIAGRA [Suspect]
     Indication: ERECTILE DYSFUNCTION
  2. CALCIUM CHLORIDE [Concomitant]
  3. VITAMIN CAP [Concomitant]
  4. PRILOSEC [Concomitant]
  5. PROZAC [Concomitant]
  6. ALL OTHER THERAPEUTIC PRODUCTS [Concomitant]
  7. AMINOPHYLLINE [Concomitant]
  8. NITROGLYCERIN [Concomitant]
  9. THEOPHYLLINE [Concomitant]

REACTIONS (3)
  - BLINDNESS [None]
  - DRUG LEVEL DECREASED [None]
  - MYOCARDIAL INFARCTION [None]
